FAERS Safety Report 22221762 (Version 7)
Quarter: 2024Q4

REPORT INFORMATION
  Report Type: Report from Study
  Country: CA (occurrence: CA)
  Receive Date: 20230418
  Receipt Date: 20241011
  Transmission Date: 20250114
  Serious: Yes (Hospitalization)
  Sender: ROCHE
  Company Number: CA-ROCHE-3329216

PATIENT
  Sex: Female

DRUGS (3)
  1. OCREVUS [Suspect]
     Active Substance: OCRELIZUMAB
     Indication: Primary progressive multiple sclerosis
     Dosage: 300 MG AT DAY 0 AND 14, THEN 600 MG EVERY 6 MONTH
     Route: 042
     Dates: start: 20230130
  2. PREDNISONE [Concomitant]
     Active Substance: PREDNISONE
  3. GABAPENTIN [Concomitant]
     Active Substance: GABAPENTIN

REACTIONS (15)
  - Pneumonia [Not Recovered/Not Resolved]
  - Muscle spasms [Unknown]
  - Back pain [Not Recovered/Not Resolved]
  - Headache [Not Recovered/Not Resolved]
  - Fatigue [Not Recovered/Not Resolved]
  - Infected cyst [Recovering/Resolving]
  - Attention deficit hyperactivity disorder [Unknown]
  - Paraesthesia [Unknown]
  - Pruritus [Unknown]
  - Lhermitte^s sign [Not Recovered/Not Resolved]
  - Muscular weakness [Not Recovered/Not Resolved]
  - Somnolence [Unknown]
  - Bladder disorder [Not Recovered/Not Resolved]
  - Memory impairment [Not Recovered/Not Resolved]
  - Balance disorder [Not Recovered/Not Resolved]
